FAERS Safety Report 12990015 (Version 1)
Quarter: 2016Q4

REPORT INFORMATION
  Report Type: Spontaneous
  Country: CA (occurrence: CA)
  Receive Date: 20161201
  Receipt Date: 20161201
  Transmission Date: 20170207
  Serious: Yes (Other)
  Sender: FDA-Public Use
  Company Number: PHHY2016CA161765

PATIENT
  Age: 33 Year
  Sex: Female

DRUGS (1)
  1. IMATINIB [Suspect]
     Active Substance: IMATINIB
     Indication: GASTROINTESTINAL STROMAL TUMOUR
     Dosage: UNK
     Route: 065
     Dates: start: 201305

REACTIONS (6)
  - Histiocytosis [Unknown]
  - Rash [Unknown]
  - Papule [Unknown]
  - Erythema [Unknown]
  - Xanthogranuloma [Unknown]
  - Eosinophilia [Unknown]
